FAERS Safety Report 8564368-7 (Version None)
Quarter: 2012Q3

REPORT INFORMATION
  Report Type: 
  Country: None (occurrence: None)
  Receive Date: 20120803
  Receipt Date: 20120727
  Transmission Date: 20120928
  Serious: Yes (Other)
  Sender: FDA-Public Use
  Company Number: AU-B.I. PHARMACEUTICALS,INC./RIDGEFIELD-2012-AU-01322AU

PATIENT
  Age: 9 Decade
  Sex: Female

DRUGS (5)
  1. METFORMIN HCL [Concomitant]
  2. NORVASC [Concomitant]
  3. ACTOS [Concomitant]
  4. TRAJENTA [Suspect]
  5. AVAPRO [Concomitant]

REACTIONS (1)
  - CARDIAC FAILURE [None]
